FAERS Safety Report 7134274-3 (Version None)
Quarter: 2010Q4

REPORT INFORMATION
  Report Type: 
  Country: None (occurrence: None)
  Receive Date: 20101117
  Receipt Date: 20101105
  Transmission Date: 20110411
  Serious: Yes (Other)
  Sender: FDA-Public Use
  Company Number: FR-20100216

PATIENT
  Age: 65 Year
  Sex: Female

DRUGS (3)
  1. HEXABRIX [Suspect]
     Indication: PRODUCT USED FOR UNKNOWN INDICATION
     Dosage: INTRA-ARTICULAR
     Route: 014
     Dates: start: 20101025, end: 20101025
  2. XYLOCAINE (LIDOCAINE) (LIDOCAINE) [Concomitant]
  3. ALTIM (CORTIVAZOL) (CORTIVAZOL),050316 [Concomitant]

REACTIONS (3)
  - ERYTHEMA [None]
  - LOSS OF CONSCIOUSNESS [None]
  - MALAISE [None]
